FAERS Safety Report 21420350 (Version 2)
Quarter: 2022Q4

REPORT INFORMATION
  Report Type: Spontaneous
  Country: EG (occurrence: EG)
  Receive Date: 20221007
  Receipt Date: 20221017
  Transmission Date: 20230113
  Serious: Yes (Hospitalization, Disabling, Other)
  Sender: FDA-Public Use
  Company Number: EG-NOVOPROD-964267

PATIENT
  Age: 668 Month
  Sex: Male
  Weight: 92 kg

DRUGS (4)
  1. NEUROTON [CITICOLINE SODIUM] [Concomitant]
     Indication: Hypovitaminosis
     Dosage: 2 TAB/DAY (STARTED FROM 4 YEARS AGO)
     Route: 048
  2. METFORMIN [Concomitant]
     Active Substance: METFORMIN HYDROCHLORIDE
     Indication: Diabetes mellitus
     Dosage: 1-2 TAB/DAY STARTED FROM 4 YEARS, STOPPED FROM 4-5 MONTHS AGO
     Route: 048
  3. INSULIN HUMAN [Suspect]
     Active Substance: INSULIN HUMAN
     Indication: Diabetes mellitus
     Dosage: 60 IU, QD (40U MORNING - 20U EVENING)
     Route: 058
  4. BENFOTIAMINE\CYANOCOBALAMIN\PYRIDOXINE HYDROCHLORIDE [Concomitant]
     Active Substance: BENFOTIAMINE\CYANOCOBALAMIN\PYRIDOXINE HYDROCHLORIDE
     Indication: Product used for unknown indication
     Dosage: UNK

REACTIONS (3)
  - Leg amputation [Recovered/Resolved with Sequelae]
  - Blister [Not Recovered/Not Resolved]
  - Blood glucose increased [Unknown]

NARRATIVE: CASE EVENT DATE: 20170101
